FAERS Safety Report 19903268 (Version 1)
Quarter: 2021Q4

REPORT INFORMATION
  Report Type: Spontaneous
  Country: GB (occurrence: GB)
  Receive Date: 20211001
  Receipt Date: 20211001
  Transmission Date: 20220303
  Serious: Yes (Hospitalization)
  Sender: FDA-Public Use
  Company Number: None

PATIENT
  Sex: Female

DRUGS (4)
  1. GLICLAZIDE [Suspect]
     Active Substance: GLICLAZIDE
     Dosage: 2 DOSAGE FORMS DAILY; STRENGTH : 60MG,  WITH BREAKFAST
     Route: 065
  2. METFORMIN [Suspect]
     Active Substance: METFORMIN HYDROCHLORIDE
     Dosage: 3 DOSAGE FORMS DAILY; STRENGTH : 850MG
  3. SPIRONOLACTONE [Suspect]
     Active Substance: SPIRONOLACTONE
     Dosage: 1 DOSAGE FORMS DAILY; STRENGTH : 50MG
  4. VALSARTAN [Suspect]
     Active Substance: VALSARTAN
     Dosage: 2 DOSAGE FORMS DAILY; SACUBITRIL 49MG / VALSARTAN 51MG TABLETS ONE TO BE TAKEN TWICE A DAY

REACTIONS (2)
  - Acute kidney injury [Recovered/Resolved with Sequelae]
  - Hyperkalaemia [Recovered/Resolved with Sequelae]
